FAERS Safety Report 13004250 (Version 1)
Quarter: 2016Q4

REPORT INFORMATION
  Report Type: Report from Study
  Country: CA (occurrence: CA)
  Receive Date: 20161206
  Receipt Date: 20161206
  Transmission Date: 20170207
  Serious: Yes (Other)
  Sender: FDA-Public Use
  Company Number: CA-ROCHE-1864198

PATIENT
  Age: 69 Year
  Sex: Male
  Weight: 75 kg

DRUGS (8)
  1. FOLIC ACID. [Concomitant]
     Active Substance: FOLIC ACID
     Route: 065
  2. ACTEMRA [Suspect]
     Active Substance: TOCILIZUMAB
     Indication: RHEUMATOID ARTHRITIS
     Route: 042
     Dates: start: 20101126
  3. ACTEMRA [Suspect]
     Active Substance: TOCILIZUMAB
     Route: 042
     Dates: start: 20130830
  4. METHOTREXATE. [Suspect]
     Active Substance: METHOTREXATE
     Indication: ARTHRALGIA
     Route: 065
     Dates: end: 20150304
  5. METHOTREXATE. [Suspect]
     Active Substance: METHOTREXATE
     Route: 065
  6. PNEUMOVAX 23 [Suspect]
     Active Substance: PNEUMOCOCCAL VACCINE, POLYVALENT 23
     Indication: PRODUCT USED FOR UNKNOWN INDICATION
     Route: 065
     Dates: start: 201512
  7. TYLENOL [Concomitant]
     Active Substance: ACETAMINOPHEN
  8. CELEBREX [Concomitant]
     Active Substance: CELECOXIB

REACTIONS (39)
  - Pain in extremity [Unknown]
  - Musculoskeletal stiffness [Unknown]
  - Inflammation [Unknown]
  - Blood pressure increased [Unknown]
  - Arthralgia [Not Recovered/Not Resolved]
  - Oxygen saturation decreased [Unknown]
  - Skin discolouration [Not Recovered/Not Resolved]
  - Blood pressure systolic increased [Unknown]
  - Gingival ulceration [Recovering/Resolving]
  - Nasal disorder [Unknown]
  - Skin papilloma [Unknown]
  - Anaemia [Unknown]
  - Arthralgia [Not Recovered/Not Resolved]
  - Arthritis [Unknown]
  - Skin abrasion [Unknown]
  - Neck pain [Unknown]
  - Blood pressure decreased [Unknown]
  - Mass [Not Recovered/Not Resolved]
  - Infusion related reaction [Unknown]
  - Heart rate decreased [Unknown]
  - Dysuria [Not Recovered/Not Resolved]
  - Mouth ulceration [Unknown]
  - Insomnia [Unknown]
  - Musculoskeletal pain [Unknown]
  - Pain [Unknown]
  - Pruritus [Unknown]
  - Body temperature decreased [Unknown]
  - Peripheral swelling [Unknown]
  - Oedema peripheral [Recovering/Resolving]
  - Cystitis bacterial [Recovered/Resolved]
  - Heart rate decreased [Unknown]
  - Rash [Unknown]
  - Ocular hyperaemia [Unknown]
  - Musculoskeletal pain [Unknown]
  - Dry throat [Not Recovered/Not Resolved]
  - Back pain [Unknown]
  - Heart rate decreased [Unknown]
  - Ill-defined disorder [Unknown]
  - Drug ineffective [Unknown]

NARRATIVE: CASE EVENT DATE: 201107
